FAERS Safety Report 21858427 (Version 3)
Quarter: 2024Q1

REPORT INFORMATION
  Report Type: Report from Study
  Country: US (occurrence: US)
  Receive Date: 20230113
  Receipt Date: 20240221
  Transmission Date: 20240410
  Serious: Yes (Other)
  Sender: FDA-Public Use
  Company Number: US-ABBVIE-4234267

PATIENT
  Age: 23 Year
  Sex: Female

DRUGS (3)
  1. RINVOQ [Suspect]
     Active Substance: UPADACITINIB
     Indication: Rheumatoid arthritis
     Dosage: FORM STRENGTH WAS 15 MILLIGRAMS
     Route: 048
     Dates: start: 20220928
  2. RINVOQ [Suspect]
     Active Substance: UPADACITINIB
     Indication: Rheumatoid arthritis
     Dosage: FORM STRENGTH WAS 15 MILLIGRAMS
     Route: 048
     Dates: end: 20230102
  3. RINVOQ [Suspect]
     Active Substance: UPADACITINIB
     Indication: Rheumatoid arthritis
     Dosage: FORM STRENGTH WAS 15 MILLIGRAMS
     Route: 048
     Dates: start: 20230301

REACTIONS (6)
  - Tonsillar disorder [Unknown]
  - Nausea [Recovered/Resolved]
  - Joint stiffness [Not Recovered/Not Resolved]
  - Ear infection [Unknown]
  - Nasopharyngitis [Unknown]
  - Pain [Unknown]

NARRATIVE: CASE EVENT DATE: 20221201
